FAERS Safety Report 14707612 (Version 1)
Quarter: 2018Q2

REPORT INFORMATION
  Report Type: Report from Study
  Country: US (occurrence: US)
  Receive Date: 20180403
  Receipt Date: 20180403
  Transmission Date: 20180711
  Serious: No
  Sender: FDA-Public Use
  Company Number: US-AMGEN-USASL2018042877

PATIENT
  Age: 6 Year
  Sex: Male

DRUGS (1)
  1. ENBREL [Suspect]
     Active Substance: ETANERCEPT
     Indication: JUVENILE IDIOPATHIC ARTHRITIS
     Dosage: 17.5 MG, QWK
     Route: 065
     Dates: start: 20180305

REACTIONS (3)
  - Underdose [Unknown]
  - Therapy non-responder [Unknown]
  - Accidental exposure to product [Unknown]

NARRATIVE: CASE EVENT DATE: 201803
